FAERS Safety Report 9693900 (Version 1)
Quarter: 2013Q4

REPORT INFORMATION
  Report Type: Spontaneous
  Country: MX (occurrence: MX)
  Receive Date: 20131118
  Receipt Date: 20131118
  Transmission Date: 20140711
  Serious: Yes (Death, Other)
  Sender: FDA-Public Use
  Company Number: MX-PFIZER INC-2013327937

PATIENT
  Age: 72 Year
  Sex: Male

DRUGS (2)
  1. ERANZ [Suspect]
  2. LIPITOR [Suspect]

REACTIONS (2)
  - Pneumonia [Fatal]
  - Diabetes mellitus [Fatal]
